FAERS Safety Report 8101416-2 (Version None)
Quarter: 2012Q1

REPORT INFORMATION
  Report Type: 
  Country: None (occurrence: None)
  Receive Date: 20120129
  Receipt Date: 20111008
  Transmission Date: 20120608
  Serious: No
  Sender: FDA-Public Use
  Company Number: US-ABBOTT-11P-163-0862846-00

PATIENT
  Age: 53 Year
  Sex: Female

DRUGS (9)
  1. SOMA [Concomitant]
     Indication: MUSCLE SPASMS
  2. ONGLYZA [Concomitant]
     Indication: PRODUCT USED FOR UNKNOWN INDICATION
  3. METFORMIN HCL [Concomitant]
     Indication: PRODUCT USED FOR UNKNOWN INDICATION
  4. HUMIRA [Suspect]
     Indication: RHEUMATOID ARTHRITIS
     Dates: start: 20110601, end: 20110901
  5. CONTROLLER [Concomitant]
     Indication: ASTHMA
  6. HUMIRA [Suspect]
     Dates: start: 20110901
  7. PERCOCET [Concomitant]
     Indication: PAIN
     Dosage: NOT NEEDED IN 3 WEEKS
  8. CYMBALTA [Concomitant]
     Indication: PRODUCT USED FOR UNKNOWN INDICATION
  9. PROAIR HFA [Concomitant]
     Indication: ASTHMA

REACTIONS (3)
  - JOINT STIFFNESS [None]
  - PAIN [None]
  - FATIGUE [None]
